FAERS Safety Report 8464864-7 (Version None)
Quarter: 2012Q2

REPORT INFORMATION
  Report Type: 
  Country: None (occurrence: None)
  Receive Date: 20120626
  Receipt Date: 20120615
  Transmission Date: 20120825
  Serious: Yes (Other)
  Sender: FDA-Public Use
  Company Number: DE-ELI_LILLY_AND_COMPANY-DE201206005356

PATIENT
  Age: 59 Year
  Sex: Male
  Weight: 64 kg

DRUGS (1)
  1. ALIMTA [Suspect]
     Indication: LUNG NEOPLASM MALIGNANT
     Dosage: 500 MG/M2, UNK
     Route: 042
     Dates: start: 20120127, end: 20120309

REACTIONS (5)
  - CORNEAL DYSTROPHY [None]
  - BLINDNESS [None]
  - CORNEAL OPACITY [None]
  - CORNEAL OEDEMA [None]
  - CORNEAL DEPOSITS [None]
